FAERS Safety Report 15790900 (Version 2)
Quarter: 2019Q2

REPORT INFORMATION
  Report Type: Spontaneous
  Country: US (occurrence: US)
  Receive Date: 20190104
  Receipt Date: 20190412
  Transmission Date: 20190711
  Serious: No
  Sender: FDA-Public Use
  Company Number: US-ACTELION-A-NJ2018-182925

PATIENT
  Age: 40 Year
  Sex: Male
  Weight: 77.1 kg

DRUGS (10)
  1. BACLOFEN. [Concomitant]
     Active Substance: BACLOFEN
  2. UPTRAVI [Suspect]
     Active Substance: SELEXIPAG
     Indication: PULMONARY HYPERTENSION
     Dosage: 600 MCG, UNK
     Route: 048
     Dates: start: 2018
  3. FUROSEMIDE. [Concomitant]
     Active Substance: FUROSEMIDE
  4. DIGOXIN. [Concomitant]
     Active Substance: DIGOXIN
  5. RIVAROXABAN [Concomitant]
     Active Substance: RIVAROXABAN
  6. AMBRISENTAN [Suspect]
     Active Substance: AMBRISENTAN
     Indication: PULMONARY HYPERTENSION
     Dosage: 10 MG, QD
     Route: 065
     Dates: start: 20161007
  7. AMBRISENTAN [Suspect]
     Active Substance: AMBRISENTAN
     Dosage: 5 UNK, UNK
     Route: 048
  8. SILDENAFIL. [Concomitant]
     Active Substance: SILDENAFIL
  9. UPTRAVI [Suspect]
     Active Substance: SELEXIPAG
     Dosage: 400 MCG, BID
     Route: 048
     Dates: start: 20181215
  10. LAMOTRIGINE. [Concomitant]
     Active Substance: LAMOTRIGINE

REACTIONS (7)
  - Pain in jaw [Recovered/Resolved]
  - Nausea [Not Recovered/Not Resolved]
  - Migraine [Not Recovered/Not Resolved]
  - Jaw disorder [Not Recovered/Not Resolved]
  - Vomiting [Not Recovered/Not Resolved]
  - Headache [Not Recovered/Not Resolved]
  - Malaise [Not Recovered/Not Resolved]

NARRATIVE: CASE EVENT DATE: 2018
